FAERS Safety Report 23257360 (Version 1)
Quarter: 2023Q4

REPORT INFORMATION
  Report Type: Spontaneous
  Country: IT (occurrence: IT)
  Receive Date: 20231204
  Receipt Date: 20231204
  Transmission Date: 20240110
  Serious: Yes (Death, Other)
  Sender: FDA-Public Use
  Company Number: None

PATIENT
  Age: 62 Year
  Sex: Female
  Weight: 50 kg

DRUGS (3)
  1. PEMETREXED [Suspect]
     Active Substance: PEMETREXED
     Indication: Lung adenocarcinoma
     Dates: start: 20230407, end: 20230721
  2. PEMBROLIZUMAB [Suspect]
     Active Substance: PEMBROLIZUMAB
     Indication: Lung adenocarcinoma
     Dosage: LAST ONE CARRIED ON 20-JUL-2023 INSTEAD CONSTITUTED MAINTENANCE THERAPY (PEMETREXED+PEMBROLIZUMAB)
     Dates: start: 20230407, end: 20230721
  3. CISPLATIN [Concomitant]
     Active Substance: CISPLATIN
     Indication: Lung adenocarcinoma
     Dates: start: 20230407, end: 20230630

REACTIONS (4)
  - Vomiting [Recovered/Resolved]
  - Immune-mediated enterocolitis [Fatal]
  - Abnormal loss of weight [Fatal]
  - Diarrhoea [Fatal]

NARRATIVE: CASE EVENT DATE: 20230701
